FAERS Safety Report 7293113-0 (Version None)
Quarter: 2011Q1

REPORT INFORMATION
  Report Type: 
  Country: None (occurrence: None)
  Receive Date: 20110203
  Receipt Date: 20081223
  Transmission Date: 20110831
  Serious: No
  Sender: FDA-Public Use
  Company Number: 2008-00142

PATIENT
  Sex: Female
  Weight: 52.1637 kg

DRUGS (4)
  1. ZICAM COLD REMEDY GEL SWABS [Suspect]
     Dosage: QID X 3 WEEKS
     Dates: start: 20040101
  2. ZICAM COLD REMEDY GEL SWABS [Suspect]
     Dosage: QID/3 WEEKS
     Dates: start: 20040101
  3. ZICAM COLD REMEDY ORAL MIST [Suspect]
     Dosage: QID/3 WEEKS
     Dates: start: 20040101
  4. ZICAM COLD REMEDY NASAL GEL [Suspect]
     Dosage: QID X 3 WEEKS
     Dates: start: 20040101

REACTIONS (1)
  - ANOSMIA [None]
